FAERS Safety Report 4316176-0 (Version None)
Quarter: 2004Q1

REPORT INFORMATION
  Report Type: 
  Country: None (occurrence: None)
  Receive Date: 20040311
  Receipt Date: 20040311
  Transmission Date: 20041129
  Serious: Yes (Other)
  Sender: FDA-Public Use
  Company Number: None

PATIENT
  Age: 33 Year
  Sex: Male
  Weight: 86.1834 kg

DRUGS (2)
  1. PAXIL [Suspect]
     Indication: ANXIETY
     Dosage: 25 MG QD ORAL
     Route: 048
     Dates: start: 20011227, end: 20040310
  2. PAXIL [Suspect]
     Indication: DEPRESSION
     Dosage: 25 MG QD ORAL
     Route: 048
     Dates: start: 20011227, end: 20040310

REACTIONS (1)
  - UNEVALUABLE EVENT [None]
